FAERS Safety Report 14154319 (Version 3)
Quarter: 2017Q4

REPORT INFORMATION
  Report Type: Spontaneous
  Country: JP (occurrence: JP)
  Receive Date: 20171102
  Receipt Date: 20171205
  Transmission Date: 20180321
  Serious: Yes (Other)
  Sender: FDA-Public Use
  Company Number: JP-MYLANLABS-2017M1068610

PATIENT
  Age: 4 Year
  Sex: Female
  Weight: 13 kg

DRUGS (2)
  1. OZEX [Suspect]
     Active Substance: TOSUFLOXACIN TOSYLATE
     Indication: BRONCHITIS
     Dosage: UNK
     Route: 048
     Dates: start: 20170623, end: 20170625
  2. CLARITHROMYCIN MYLAN [Suspect]
     Active Substance: CLARITHROMYCIN
     Indication: BRONCHITIS
     Dosage: UNK
     Route: 048
     Dates: start: 20170622, end: 20170623

REACTIONS (2)
  - Viral infection [Unknown]
  - Neutropenia [Not Recovered/Not Resolved]

NARRATIVE: CASE EVENT DATE: 20170701
